FAERS Safety Report 24984607 (Version 1)
Quarter: 2025Q1

REPORT INFORMATION
  Report Type: Spontaneous
  Country: KR (occurrence: KR)
  Receive Date: 20250219
  Receipt Date: 20250219
  Transmission Date: 20250409
  Serious: Yes (Other)
  Sender: ASTELLAS
  Company Number: KR-GILEAD-2025-0703874

PATIENT
  Sex: Male

DRUGS (1)
  1. AMBISOME [Suspect]
     Active Substance: AMPHOTERICIN B
     Indication: Fungal infection
     Dosage: 200 MG, QD
     Route: 065
     Dates: start: 20221125, end: 20221208

REACTIONS (3)
  - Neuropathy peripheral [Recovering/Resolving]
  - Hypokalaemia [Recovering/Resolving]
  - Electrolyte imbalance [Recovering/Resolving]

NARRATIVE: CASE EVENT DATE: 20221208
